FAERS Safety Report 21079201 (Version 2)
Quarter: 2025Q2

REPORT INFORMATION
  Report Type: Report from Study
  Country: CA (occurrence: CA)
  Receive Date: 20220714
  Receipt Date: 20250602
  Transmission Date: 20250716
  Serious: Yes (Hospitalization, Congenital Anomaly, Other)
  Sender: AUROBINDO
  Company Number: CA-AUROBINDO-AUR-APL-2022-025246

PATIENT
  Weight: 1.4 kg

DRUGS (3)
  1. VALSARTAN [Suspect]
     Active Substance: VALSARTAN
     Indication: Hypertension
     Route: 064
  2. LASIX [Suspect]
     Active Substance: FUROSEMIDE
     Indication: Hypertension
     Route: 064
  3. SPIRONOLACTONE [Suspect]
     Active Substance: SPIRONOLACTONE
     Indication: Hypertension
     Route: 064

REACTIONS (12)
  - Renal tubular dysfunction [Not Recovered/Not Resolved]
  - Bicuspid aortic valve [Not Recovered/Not Resolved]
  - Hypocalvaria [Not Recovered/Not Resolved]
  - Foetal exposure during pregnancy [Not Recovered/Not Resolved]
  - Congenital musculoskeletal disorder of skull [Not Recovered/Not Resolved]
  - Congenital renal disorder [Not Recovered/Not Resolved]
  - Foetal disorder [Not Recovered/Not Resolved]
  - Kidney fibrosis [Not Recovered/Not Resolved]
  - Limb deformity [Not Recovered/Not Resolved]
  - Renal vessel congenital anomaly [Not Recovered/Not Resolved]
  - Potter^s syndrome [Unknown]
  - Limb reduction defect [Unknown]
